FAERS Safety Report 7929537-5 (Version None)
Quarter: 2011Q4

REPORT INFORMATION
  Report Type: 
  Country: None (occurrence: None)
  Receive Date: 20111121
  Receipt Date: 20111115
  Transmission Date: 20120403
  Serious: Yes (Other)
  Sender: FDA-Public Use
  Company Number: US-JNJFOC-20111107155

PATIENT
  Age: 44 Year
  Sex: Male

DRUGS (3)
  1. PREDNISONE TAB [Suspect]
     Indication: RHEUMATOID ARTHRITIS
     Route: 065
  2. LEVAQUIN [Suspect]
     Indication: SINUSITIS
     Route: 065
     Dates: start: 19990901
  3. METHYLPREDNISOLONE [Suspect]
     Indication: RHEUMATOID ARTHRITIS
     Route: 065

REACTIONS (3)
  - TENDON RUPTURE [None]
  - JOINT INJURY [None]
  - TENDON INJURY [None]
